FAERS Safety Report 6254171-5 (Version None)
Quarter: 2009Q2

REPORT INFORMATION
  Report Type: 
  Country: None (occurrence: None)
  Receive Date: 20090630
  Receipt Date: 20090630
  Transmission Date: 20091009
  Serious: Yes (Other)
  Sender: FDA-Public Use
  Company Number: None

PATIENT
  Age: 64 Year
  Sex: Male
  Weight: 81.6475 kg

DRUGS (2)
  1. BCG [Suspect]
     Indication: BLADDER CANCER
     Dosage: THERACYS 81 MG EVERY 6 MONTH INTRAVESICAL
     Route: 043
     Dates: start: 20081117, end: 20090101
  2. BCG [Suspect]
     Indication: BLADDER CANCER
     Dosage: THERACYS 81 MG EVERY 6 MONTH INTRAVESICAL
     Route: 043
     Dates: start: 20090603, end: 20090617

REACTIONS (5)
  - ABASIA [None]
  - ERYTHEMA [None]
  - FEELING HOT [None]
  - OEDEMA PERIPHERAL [None]
  - PAIN IN EXTREMITY [None]
